FAERS Safety Report 24045672 (Version 6)
Quarter: 2025Q2

REPORT INFORMATION
  Report Type: Spontaneous
  Country: US (occurrence: US)
  Receive Date: 20240703
  Receipt Date: 20250502
  Transmission Date: 20250717
  Serious: Yes (Hospitalization)
  Sender: KARYOPHARM THERAPEUTICS
  Company Number: US-KARYOPHARM-2024KPT001177

PATIENT

DRUGS (26)
  1. XPOVIO [Suspect]
     Active Substance: SELINEXOR
     Indication: Plasma cell myeloma
     Route: 048
     Dates: start: 20240606, end: 202406
  2. XPOVIO [Suspect]
     Active Substance: SELINEXOR
     Route: 048
     Dates: start: 2024, end: 20241030
  3. XPOVIO [Suspect]
     Active Substance: SELINEXOR
     Route: 048
     Dates: start: 202406, end: 202407
  4. XPOVIO [Suspect]
     Active Substance: SELINEXOR
     Route: 048
     Dates: start: 2025, end: 2025
  5. ZYPREXA [Concomitant]
     Active Substance: OLANZAPINE
  6. DEXAMETHASONE [Concomitant]
     Active Substance: DEXAMETHASONE
  7. DARZALEX [Concomitant]
     Active Substance: DARATUMUMAB
  8. ASPIRIN [Concomitant]
     Active Substance: ASPIRIN
  9. HUMALOG [Concomitant]
     Active Substance: INSULIN LISPRO
  10. ZOFRAN [Concomitant]
     Active Substance: ONDANSETRON HYDROCHLORIDE
  11. NORCO [Concomitant]
     Active Substance: ACETAMINOPHEN\HYDROCODONE BITARTRATE
  12. LISINOPRIL [Concomitant]
     Active Substance: LISINOPRIL
  13. PIOGLITAZONE HYDROCHLORIDE [Concomitant]
     Active Substance: PIOGLITAZONE HYDROCHLORIDE
  14. SIMVASTATIN [Concomitant]
     Active Substance: SIMVASTATIN
  15. METFORMIN HYDROCHLORIDE [Concomitant]
     Active Substance: METFORMIN HYDROCHLORIDE
  16. CARVEDILOL [Concomitant]
     Active Substance: CARVEDILOL
  17. GLIPIZIDE XL [Concomitant]
     Active Substance: GLIPIZIDE
  18. LASIX [Concomitant]
     Active Substance: FUROSEMIDE
  19. ALLOPURINOL [Concomitant]
     Active Substance: ALLOPURINOL
  20. PREDNISONE [Concomitant]
     Active Substance: PREDNISONE
  21. CLINDAMYCIN [Concomitant]
     Active Substance: CLINDAMYCIN
  22. ONDANSETRON [Concomitant]
     Active Substance: ONDANSETRON
  23. FUROSEMIDE [Concomitant]
     Active Substance: FUROSEMIDE
  24. POSACONAZOLE [Concomitant]
     Active Substance: POSACONAZOLE
  25. OLANZAPINE [Concomitant]
     Active Substance: OLANZAPINE
  26. ACETAMINOPHEN\HYDROCODONE [Concomitant]
     Active Substance: ACETAMINOPHEN\HYDROCODONE

REACTIONS (13)
  - Palpitations [Unknown]
  - Rotator cuff syndrome [Unknown]
  - Balance disorder [Unknown]
  - Blood potassium increased [Unknown]
  - Somnolence [Unknown]
  - Pollakiuria [Not Recovered/Not Resolved]
  - Oedema peripheral [Recovering/Resolving]
  - Asthenia [Recovering/Resolving]
  - Fatigue [Unknown]
  - Confusional state [Unknown]
  - Dyspnoea [Not Recovered/Not Resolved]
  - Diarrhoea [Unknown]
  - Drug ineffective [Unknown]

NARRATIVE: CASE EVENT DATE: 20240101
